FAERS Safety Report 10788618 (Version 4)
Quarter: 2020Q2

REPORT INFORMATION
  Report Type: Report from Study
  Country: FR (occurrence: FR)
  Receive Date: 20150212
  Receipt Date: 20200408
  Transmission Date: 20200713
  Serious: Yes (Life-Threatening)
  Sender: FDA-Public Use
  Company Number: FR-009507513-1502FRA003057

PATIENT

DRUGS (2)
  1. TEMODAL [Suspect]
     Active Substance: TEMOZOLOMIDE
     Indication: MALIGNANT NEOPLASM OF RETINA
     Dosage: 150 MG/M2, 5 DAYS PER MONTH, EVERY MONTH
     Route: 048
  2. TEMODAL [Suspect]
     Active Substance: TEMOZOLOMIDE
     Dosage: 200 MG/M2, 5 DAYS PER MONTH, EVERY MONTH
     Route: 048

REACTIONS (2)
  - Anaemia [Unknown]
  - Off label use [Unknown]
